FAERS Safety Report 9473881 (Version 1)
Quarter: 2013Q3

REPORT INFORMATION
  Report Type: Spontaneous
  Country: US (occurrence: US)
  Receive Date: 20130823
  Receipt Date: 20130823
  Transmission Date: 20140515
  Serious: No
  Sender: FDA-Public Use
  Company Number: US-BRISTOL-MYERS SQUIBB COMPANY-17096264

PATIENT
  Sex: Male

DRUGS (5)
  1. SPRYCEL [Suspect]
     Indication: ACUTE LYMPHOCYTIC LEUKAEMIA
  2. CYCLOPHOSPHAMIDE [Suspect]
  3. VINCRISTINE [Suspect]
  4. ADRIAMYCIN [Suspect]
  5. DEXAMETHASONE [Suspect]

REACTIONS (1)
  - Pleural effusion [Unknown]
